FAERS Safety Report 5676440-X (Version None)
Quarter: 2008Q1

REPORT INFORMATION
  Report Type: 
  Country: None (occurrence: None)
  Receive Date: 20080321
  Receipt Date: 20080312
  Transmission Date: 20080703
  Serious: Yes (Other)
  Sender: FDA-Public Use
  Company Number: ES-GENENTECH-257887

PATIENT
  Age: 44 Year
  Sex: Female

DRUGS (6)
  1. HERCEPTIN [Suspect]
     Indication: BREAST NEOPLASM
     Dosage: 125 MG, UNK
     Route: 042
  2. TAXOL [Suspect]
     Indication: BREAST NEOPLASM
     Dosage: 135 MG, UNK
     Route: 042
  3. FORTECORTIN [Suspect]
     Indication: PROPHYLAXIS
     Dosage: 8 MG, UNK
     Route: 042
  4. CARBOPLATIN [Suspect]
     Indication: BREAST NEOPLASM
     Dosage: 250 MG, UNK
     Route: 042
  5. POLARAMINE [Suspect]
     Indication: PROPHYLAXIS
     Dosage: 5 MG, UNK
     Route: 042
  6. ONDANSETRON HCL [Suspect]
     Indication: PROPHYLAXIS OF NAUSEA AND VOMITING
     Dosage: 8 MG, UNK
     Route: 042

REACTIONS (3)
  - CHEST DISCOMFORT [None]
  - ERYTHEMA [None]
  - PRURITUS [None]
